FAERS Safety Report 17117159 (Version 3)
Quarter: 2020Q4

REPORT INFORMATION
  Report Type: Spontaneous
  Country: US (occurrence: US)
  Receive Date: 20191205
  Receipt Date: 20201209
  Transmission Date: 20210113
  Serious: Yes (Hospitalization, Other)
  Sender: FDA-Public Use
  Company Number: US-ASTRAZENECA-2019SF73337

PATIENT
  Age: 23441 Day
  Sex: Male
  Weight: 68 kg

DRUGS (74)
  1. PRILOSEC [Suspect]
     Active Substance: OMEPRAZOLE MAGNESIUM
     Indication: GASTROOESOPHAGEAL REFLUX DISEASE
     Route: 048
     Dates: start: 200102, end: 201203
  2. AMLODIPINE [Concomitant]
     Active Substance: AMLODIPINE BESYLATE
     Indication: BLOOD PRESSURE MEASUREMENT
     Dates: start: 2016
  3. HYDROCODONE [Concomitant]
     Active Substance: HYDROCODONE
  4. RIBAVIRIN. [Concomitant]
     Active Substance: RIBAVIRIN
  5. XARELTO [Concomitant]
     Active Substance: RIVAROXABAN
  6. PROVENTIL [Concomitant]
     Active Substance: ALBUTEROL
  7. DEMADEX [Concomitant]
     Active Substance: TORSEMIDE
  8. NYSTATIN. [Concomitant]
     Active Substance: NYSTATIN
  9. DEXAMETHANOSONE [Concomitant]
  10. TRIAMCINOLON [Concomitant]
  11. PRILOSEC [Suspect]
     Active Substance: OMEPRAZOLE MAGNESIUM
     Indication: GASTROOESOPHAGEAL REFLUX DISEASE
     Route: 048
     Dates: start: 20010222, end: 20021127
  12. COUMADIN [Concomitant]
     Active Substance: WARFARIN SODIUM
  13. NORCO [Concomitant]
     Active Substance: ACETAMINOPHEN\HYDROCODONE BITARTRATE
  14. MAGNESIUM OXIDE. [Concomitant]
     Active Substance: MAGNESIUM OXIDE
  15. INSPRA [Concomitant]
     Active Substance: EPLERENONE
  16. BENZONATATE. [Concomitant]
     Active Substance: BENZONATATE
  17. TOBRAMYCIN/DEXAME [Concomitant]
  18. CLOBETASOL [Concomitant]
     Active Substance: CLOBETASOL
  19. CEFTIN [Concomitant]
     Active Substance: CEFUROXIME AXETIL
  20. DOXYCYCLINE. [Concomitant]
     Active Substance: DOXYCYCLINE
  21. SULFA [Concomitant]
     Active Substance: UNSPECIFIED INGREDIENT
  22. ANTIVERT [Concomitant]
     Active Substance: MECLIZINE HYDROCHLORIDE
  23. CODEINE [Concomitant]
     Active Substance: CODEINE
  24. PREVACID 24 HR [Suspect]
     Active Substance: LANSOPRAZOLE
     Indication: GASTROOESOPHAGEAL REFLUX DISEASE
     Route: 065
     Dates: start: 200102, end: 201203
  25. FAMOTIDINE. [Concomitant]
     Active Substance: FAMOTIDINE
     Dates: start: 2016, end: 2018
  26. MULTIVITAMINS [Concomitant]
     Active Substance: VITAMINS
  27. PRADAXA [Concomitant]
     Active Substance: DABIGATRAN ETEXILATE MESYLATE
  28. ASPIRIN. [Concomitant]
     Active Substance: ASPIRIN
  29. SYSTANE (HYPROMELLOSE 2910 (4000 MPA.S)) [Concomitant]
     Active Substance: HYPROMELLOSE 2910 (4000 MPA.S)
  30. MECLIZINE [Concomitant]
     Active Substance: MECLIZINE HYDROCHLORIDE
  31. LABETALOL [Concomitant]
     Active Substance: LABETALOL\LABETALOL HYDROCHLORIDE
  32. OXYCODONE [Concomitant]
     Active Substance: OXYCODONE
  33. PREVACID 24 HR [Suspect]
     Active Substance: LANSOPRAZOLE
     Indication: GASTROOESOPHAGEAL REFLUX DISEASE
     Route: 065
     Dates: start: 2013, end: 2017
  34. PROTONIX [Suspect]
     Active Substance: PANTOPRAZOLE SODIUM
     Indication: GASTROOESOPHAGEAL REFLUX DISEASE
     Route: 065
     Dates: start: 20190507, end: 2019
  35. PROTONIX [Suspect]
     Active Substance: PANTOPRAZOLE SODIUM
     Indication: GASTROOESOPHAGEAL REFLUX DISEASE
     Dosage: GENERIC
     Route: 065
     Dates: start: 2011, end: 2016
  36. PROGRAF [Concomitant]
     Active Substance: TACROLIMUS
  37. PENICILLIN [Concomitant]
     Active Substance: PENICILLIN
  38. FISH OIL [Concomitant]
     Active Substance: FISH OIL
  39. OMNICEF [Concomitant]
     Active Substance: CEFDINIR
  40. AZITHROMYCIN ANHYDROUS. [Concomitant]
     Active Substance: AZITHROMYCIN ANHYDROUS
  41. QUINOLONE [Concomitant]
     Active Substance: UNSPECIFIED INGREDIENT
  42. PLAVIX [Concomitant]
     Active Substance: CLOPIDOGREL BISULFATE
  43. IRON [Concomitant]
     Active Substance: IRON
  44. ROBITUSSIN (GUAIFENESIN) [Concomitant]
     Active Substance: GUAIFENESIN
  45. KETOCONAZOLE. [Concomitant]
     Active Substance: KETOCONAZOLE
  46. INTERFERON [Concomitant]
     Active Substance: INTERFERON
  47. VALTREX [Concomitant]
     Active Substance: VALACYCLOVIR HYDROCHLORIDE
  48. DULCOLAX NOS [Concomitant]
     Active Substance: BISACODYL OR DOCUSATE SODIUM
  49. FLONASE [Concomitant]
     Active Substance: FLUTICASONE PROPIONATE
  50. FERRITIN [Concomitant]
     Active Substance: FERRITIN
  51. METRONIDAZOLE BENZONATE [Concomitant]
  52. DOXAZOSIN [Concomitant]
     Active Substance: DOXAZOSIN MESYLATE
  53. TERAZOSIN [Concomitant]
     Active Substance: TERAZOSIN HYDROCHLORIDE
  54. CLONIDINE. [Concomitant]
     Active Substance: CLONIDINE
  55. BACTROBAN [Concomitant]
     Active Substance: MUPIROCIN\MUPIROCIN CALCIUM
  56. CIPRO [Concomitant]
     Active Substance: CIPROFLOXACIN HYDROCHLORIDE
  57. PRILOSEC [Suspect]
     Active Substance: OMEPRAZOLE MAGNESIUM
     Indication: GASTROOESOPHAGEAL REFLUX DISEASE
     Dosage: GENERIC
     Route: 065
     Dates: start: 20021226, end: 20060720
  58. ALLEGRA [Concomitant]
     Active Substance: FEXOFENADINE HYDROCHLORIDE
     Indication: MULTIPLE ALLERGIES
     Dates: start: 20010611
  59. ATIVAN [Concomitant]
     Active Substance: LORAZEPAM
  60. NICOTROL [Concomitant]
     Active Substance: NICOTINE
  61. FLUOROQUINOLONE [Concomitant]
     Active Substance: UNSPECIFIED INGREDIENT
  62. AMLODIPINE BESYLATE. [Concomitant]
     Active Substance: AMLODIPINE BESYLATE
  63. METHYLPREDNISOLONE. [Concomitant]
     Active Substance: METHYLPREDNISOLONE
  64. NAFTIN [Concomitant]
     Active Substance: NAFTIFINE HYDROCHLORIDE
  65. ZYCLARA [Concomitant]
     Active Substance: IMIQUIMOD
  66. EFFEXOR [Concomitant]
     Active Substance: VENLAFAXINE HYDROCHLORIDE
  67. PRILOSEC OTC [Suspect]
     Active Substance: OMEPRAZOLE MAGNESIUM
     Route: 048
  68. HYDRALAZINE [Concomitant]
     Active Substance: HYDRALAZINE HYDROCHLORIDE
     Indication: BLOOD PRESSURE MEASUREMENT
     Dates: start: 2016
  69. LEVAQUIN [Concomitant]
     Active Substance: LEVOFLOXACIN
  70. ZOFRAN [Concomitant]
     Active Substance: ONDANSETRON HYDROCHLORIDE
  71. BYSTOLIC [Concomitant]
     Active Substance: NEBIVOLOL HYDROCHLORIDE
  72. MINOXIDIL. [Concomitant]
     Active Substance: MINOXIDIL
  73. HYDROCHLOROTHIAZIDE. [Concomitant]
     Active Substance: HYDROCHLOROTHIAZIDE
  74. ACYCLOVIR. [Concomitant]
     Active Substance: ACYCLOVIR

REACTIONS (3)
  - Acute kidney injury [Unknown]
  - Renal failure [Unknown]
  - Chronic kidney disease [Not Recovered/Not Resolved]

NARRATIVE: CASE EVENT DATE: 20121224
